FAERS Safety Report 5007302-9 (Version None)
Quarter: 2006Q2

REPORT INFORMATION
  Report Type: 
  Country: None (occurrence: None)
  Receive Date: 20060518
  Receipt Date: 20060518
  Transmission Date: 20061013
  Serious: Yes (Other)
  Sender: FDA-Public Use
  Company Number: None

PATIENT
  Sex: Male
  Weight: 81.6475 kg

DRUGS (4)
  1. EFUDEX [Suspect]
     Dosage: APPLY BID TOPICALLY
     Route: 061
     Dates: start: 20060207, end: 20060307
  2. ENALAPRIL [Concomitant]
  3. PREDNISONE [Concomitant]
  4. CLOBETASOL PROPIONATE [Concomitant]

REACTIONS (1)
  - RASH GENERALISED [None]
